FAERS Safety Report 4849709-6 (Version None)
Quarter: 2005Q4

REPORT INFORMATION
  Report Type: 
  Country: None (occurrence: None)
  Receive Date: 20051115
  Receipt Date: 20051010
  Transmission Date: 20060501
  Serious: No
  Sender: FDA-Public Use
  Company Number: S05-USA-04621-01

PATIENT
  Age: 80 Year
  Sex: Female

DRUGS (3)
  1. NAMENDA [Suspect]
     Indication: DEMENTIA
     Dosage: 15 MG QD PO
     Route: 048
     Dates: start: 20051005
  2. NAMENDA [Suspect]
     Indication: DEMENTIA
     Dosage: 5 MG QD PO
     Route: 048
     Dates: start: 20051005
  3. NAMENDA [Suspect]
     Indication: DEMENTIA
     Dosage: 10 MG QD PO
     Route: 048
     Dates: start: 20050928, end: 20051004

REACTIONS (1)
  - FATIGUE [None]
